FAERS Safety Report 7033922-6 (Version None)
Quarter: 2010Q4

REPORT INFORMATION
  Report Type: 
  Country: None (occurrence: None)
  Receive Date: 20101005
  Receipt Date: 20100920
  Transmission Date: 20110411
  Serious: Yes (Death, Hospitalization)
  Sender: FDA-Public Use
  Company Number: GB-ACCORD-004435

PATIENT
  Age: 67 Year
  Sex: Male

DRUGS (4)
  1. IRINOTECAN HCL [Suspect]
     Indication: COLON CANCER METASTATIC
  2. OXALIPLATIN [Concomitant]
  3. FLUOROURACIL [Concomitant]
  4. LEUCOVORIN CALCIUM [Concomitant]

REACTIONS (14)
  - BACTERIAL INFECTION [None]
  - C-REACTIVE PROTEIN INCREASED [None]
  - DYSKINESIA [None]
  - ESCHERICHIA INFECTION [None]
  - FLATULENCE [None]
  - GAIT DISTURBANCE [None]
  - LEUKOPENIA [None]
  - METASTASES TO LIVER [None]
  - NECROTISING FASCIITIS [None]
  - OEDEMA PERIPHERAL [None]
  - PURULENCE [None]
  - PYREXIA [None]
  - RETROPERITONEAL ABSCESS [None]
  - RETROPERITONEAL EFFUSION [None]
